FAERS Safety Report 11190282 (Version 1)
Quarter: 2015Q2

REPORT INFORMATION
  Report Type: Spontaneous
  Country: US (occurrence: None)
  Receive Date: 20150612
  Receipt Date: 20150612
  Transmission Date: 20150821
  Serious: Yes (Life-Threatening)
  Sender: FDA-Public Use
  Company Number: None

PATIENT
  Age: 34 Year
  Sex: Female
  Weight: 53.98 kg

DRUGS (2)
  1. PANTOPRAZOLE 40MG [Suspect]
     Active Substance: PANTOPRAZOLE SODIUM
     Indication: GASTROOESOPHAGEAL REFLUX DISEASE
     Route: 048
     Dates: start: 20150610, end: 20150610
  2. PANTOPRAZOLE 40MG [Suspect]
     Active Substance: PANTOPRAZOLE SODIUM
     Indication: OESOPHAGEAL DISORDER
     Route: 048
     Dates: start: 20150610, end: 20150610

REACTIONS (7)
  - Tremor [None]
  - Blood magnesium decreased [None]
  - Rash [None]
  - Feeling abnormal [None]
  - Asthma [None]
  - Dysphagia [None]
  - Palpitations [None]

NARRATIVE: CASE EVENT DATE: 20150610
